FAERS Safety Report 10030233 (Version 1)
Quarter: 2014Q1

REPORT INFORMATION
  Report Type: Spontaneous
  Country: US (occurrence: US)
  Receive Date: 20140323
  Receipt Date: 20140323
  Transmission Date: 20141002
  Serious: No
  Sender: FDA-Public Use
  Company Number: US-ALLERGAN-1309081US

PATIENT
  Age: 46 Year
  Sex: Female

DRUGS (1)
  1. LATISSE 0.03% [Suspect]
     Indication: GROWTH OF EYELASHES
     Dosage: 2 GTT, QHS
     Route: 061
     Dates: start: 20130616, end: 20130616

REACTIONS (5)
  - Product distribution issue [Unknown]
  - Erythema [Unknown]
  - Erythema [Unknown]
  - Application site erythema [Unknown]
  - Erythema of eyelid [Unknown]
